FAERS Safety Report 5887529-4 (Version None)
Quarter: 2008Q3

REPORT INFORMATION
  Report Type: 
  Country: None (occurrence: None)
  Receive Date: 20080918
  Receipt Date: 20080910
  Transmission Date: 20090109
  Serious: Yes (Other)
  Sender: FDA-Public Use
  Company Number: PHHY2008JP21502

PATIENT
  Age: 55 Year
  Sex: Male

DRUGS (9)
  1. SLOW-K [Suspect]
     Indication: HYPOKALAEMIA
     Dosage: 600 MG, TID
     Route: 048
     Dates: start: 20080825, end: 20080906
  2. ALOSITOL [Concomitant]
     Dosage: 100 MG, UNK
     Route: 048
     Dates: start: 20080814
  3. PRAVASTATIN SODIUM [Concomitant]
     Dosage: 10 MG, UNK
     Route: 048
     Dates: start: 20080814
  4. RABEPRAZOLE SODIUM [Concomitant]
     Dosage: 10 MG, UNK
     Route: 048
     Dates: start: 20080814
  5. PAXIL [Concomitant]
     Dosage: 20 MG, UNK
     Route: 048
     Dates: start: 20080814
  6. MUCOSTA [Concomitant]
     Dosage: 300 MG, UNK
     Route: 048
     Dates: start: 20080814
  7. GASMOTIN [Concomitant]
     Dosage: 15 MG, UNK
     Route: 048
     Dates: start: 20080814
  8. RIZABEN [Concomitant]
     Dosage: 200 MG, UNK
     Route: 048
     Dates: start: 20080814
  9. CALTAN [Concomitant]

REACTIONS (1)
  - HEPATIC FUNCTION ABNORMAL [None]
